FAERS Safety Report 9171765 (Version 1)
Quarter: 2013Q1

REPORT INFORMATION
  Report Type: Spontaneous
  Country: US (occurrence: None)
  Receive Date: 20130307
  Receipt Date: 20130307
  Transmission Date: 20140127
  Serious: Yes (Other)
  Sender: FDA-Public Use
  Company Number: AEUSA201300079

PATIENT
  Age: 4 Year
  Sex: Male

DRUGS (8)
  1. ALPHANINE SD [Suspect]
     Indication: FACTOR IX DEFICIENCY
     Route: 042
  2. MYCOPHENOLATE MOFETIL [Concomitant]
  3. IGIV (MANUFACTURER UNKNOWN) [Concomitant]
  4. DEXAMETHASONE [Concomitant]
  5. RITUXIMAB [Concomitant]
  6. ENALAPRIL [Concomitant]
  7. BENEFIX [Concomitant]
  8. NOVOSEVEN [Concomitant]

REACTIONS (2)
  - Nephrotic syndrome [None]
  - Adverse reaction [None]
